FAERS Safety Report 12383837 (Version 2)
Quarter: 2016Q2

REPORT INFORMATION
  Report Type: Spontaneous
  Country: AU (occurrence: AU)
  Receive Date: 20160519
  Receipt Date: 20160531
  Transmission Date: 20160815
  Serious: Yes (Other)
  Sender: FDA-Public Use
  Company Number: AU-ACTELION-A-CH2016-135921

PATIENT
  Age: 29 Year
  Sex: Female

DRUGS (1)
  1. VELETRI [Suspect]
     Active Substance: EPOPROSTENOL
     Indication: PULMONARY HYPERTENSION
     Dosage: UNK, CONT INFUS
     Route: 042
     Dates: start: 20160427, end: 20160427

REACTIONS (2)
  - Haemoptysis [Recovered/Resolved with Sequelae]
  - Transplant [Unknown]

NARRATIVE: CASE EVENT DATE: 20160427
